FAERS Safety Report 8465414-1 (Version None)
Quarter: 2012Q2

REPORT INFORMATION
  Report Type: 
  Country: None (occurrence: None)
  Receive Date: 20120626
  Receipt Date: 20120618
  Transmission Date: 20120825
  Serious: Yes (Hospitalization, Other)
  Sender: FDA-Public Use
  Company Number: US-BAYER-2011-079325

PATIENT
  Age: 24 Year
  Sex: Female
  Weight: 68.027 kg

DRUGS (4)
  1. IBUPROFEN [Concomitant]
  2. YAZ [Suspect]
     Dosage: UNK
     Dates: start: 20060501, end: 20070101
  3. VICODIN [Concomitant]
  4. REGLAN [Concomitant]

REACTIONS (2)
  - CHOLECYSTECTOMY [None]
  - CHOLECYSTITIS CHRONIC [None]
